FAERS Safety Report 18591010 (Version 2)
Quarter: 2020Q4

REPORT INFORMATION
  Report Type: Report from Study
  Country: FR (occurrence: FR)
  Receive Date: 20201208
  Receipt Date: 20201211
  Transmission Date: 20210114
  Serious: Yes (Hospitalization, Other)
  Sender: FDA-Public Use
  Company Number: FR-JAZZ-2020-FR-016259

PATIENT

DRUGS (1)
  1. DEFITELIO [Suspect]
     Active Substance: DEFIBROTIDE SODIUM
     Indication: VENOOCCLUSIVE DISEASE
     Dosage: 25 MG/KG/DAY
     Route: 042
     Dates: start: 20180131, end: 20180221

REACTIONS (4)
  - Chronic graft versus host disease [Unknown]
  - Cytomegalovirus infection reactivation [Recovering/Resolving]
  - Diarrhoea [Recovering/Resolving]
  - Fungaemia [Unknown]

NARRATIVE: CASE EVENT DATE: 20180211
